FAERS Safety Report 8111490-5 (Version None)
Quarter: 2012Q1

REPORT INFORMATION
  Report Type: 
  Country: None (occurrence: None)
  Receive Date: 20120203
  Receipt Date: 20120125
  Transmission Date: 20120608
  Serious: Yes (Other)
  Sender: FDA-Public Use
  Company Number: JP-BRISTOL-MYERS SQUIBB COMPANY-16297954

PATIENT
  Age: 30 Year
  Sex: Female

DRUGS (5)
  1. PREDNISOLONE [Concomitant]
  2. ALPRAZOLAM [Concomitant]
     Dosage: TABS
  3. ABILIFY [Suspect]
     Route: 048
     Dates: end: 20111201
  4. LAMICTAL [Suspect]
     Dosage: TABS
     Route: 048
     Dates: start: 20110601, end: 20111201
  5. LITHIUM CARBONATE [Concomitant]
     Dosage: TABS

REACTIONS (1)
  - HYPOGAMMAGLOBULINAEMIA [None]
